FAERS Safety Report 8990401 (Version 1)
Quarter: 2012Q4

REPORT INFORMATION
  Report Type: Report from Study
  Country: BE (occurrence: BE)
  Receive Date: 20121228
  Receipt Date: 20121228
  Transmission Date: 20130627
  Serious: Yes (Hospitalization)
  Sender: FDA-Public Use
  Company Number: BE-BAXTER-2012BAX028807

PATIENT
  Age: 75 Year
  Sex: Female
  Weight: 100 kg

DRUGS (11)
  1. ENDOXAN [Suspect]
     Indication: DIFFUSE LARGE B-CELL LYMPHOMA
     Route: 042
     Dates: start: 20110131
  2. ENDOXAN [Suspect]
     Route: 042
     Dates: start: 20110314, end: 20110314
  3. RITUXIMAB [Suspect]
     Indication: DIFFUSE LARGE B-CELL LYMPHOMA
     Route: 042
     Dates: start: 20110131
  4. RITUXIMAB [Suspect]
     Route: 042
     Dates: start: 20110314, end: 20110314
  5. PREDNISONE [Suspect]
     Indication: DIFFUSE LARGE B-CELL LYMPHOMA
     Route: 048
     Dates: start: 20110131
  6. PREDNISONE [Suspect]
     Route: 048
     Dates: start: 20110314, end: 20110318
  7. DOXORUBICIN [Suspect]
     Indication: DIFFUSE LARGE B-CELL LYMPHOMA
     Route: 042
     Dates: start: 20110131
  8. DOXORUBICIN [Suspect]
     Route: 042
     Dates: start: 20110131
  9. VINCRISTINE [Suspect]
     Indication: DIFFUSE LARGE B-CELL LYMPHOMA
     Route: 042
     Dates: start: 20110131
  10. G-CSF [Suspect]
     Indication: DIFFUSE LARGE B-CELL LYMPHOMA
     Route: 058
     Dates: start: 20110201
  11. G-CSF [Suspect]
     Route: 058
     Dates: start: 20110315, end: 20110315

REACTIONS (2)
  - Diarrhoea [Recovered/Resolved]
  - Deep vein thrombosis [Recovered/Resolved with Sequelae]
